FAERS Safety Report 15254778 (Version 1)
Quarter: 2018Q3

REPORT INFORMATION
  Report Type: Spontaneous
  Country: US (occurrence: US)
  Receive Date: 20180808
  Receipt Date: 20180808
  Transmission Date: 20181010
  Serious: No
  Sender: FDA-Public Use
  Company Number: US-SA-2018SA213278

PATIENT
  Sex: Female

DRUGS (1)
  1. XYZAL ALLERGY 24HR [Suspect]
     Active Substance: LEVOCETIRIZINE DIHYDROCHLORIDE
     Route: 065

REACTIONS (6)
  - Rhinorrhoea [Unknown]
  - Sneezing [Unknown]
  - Seasonal allergy [Unknown]
  - Heart rate increased [Unknown]
  - Dyspnoea [Unknown]
  - Allergy to plants [Unknown]
